FAERS Safety Report 19090498 (Version 2)
Quarter: 2021Q2

REPORT INFORMATION
  Report Type: Report from Study
  Country: None (occurrence: NL)
  Receive Date: 20210405
  Receipt Date: 20210406
  Transmission Date: 20210717
  Serious: Yes (Death, Other)
  Sender: FDA-Public Use
  Company Number: NL-ABBVIE-21K-114-3843446-00

PATIENT
  Age: 91 Year
  Sex: Female

DRUGS (3)
  1. DUODOPA [Suspect]
     Active Substance: CARBIDOPA\LEVODOPA
     Dosage: MD: 13.5 ML, CD: 3.7 ML/H, ED: 4.0 ML
     Route: 050
  2. DUODOPA [Suspect]
     Active Substance: CARBIDOPA\LEVODOPA
     Dosage: MD: 13.0 ML, CD: 3.7 ML/H, ED: 4.0 ML
     Route: 050
  3. DUODOPA [Suspect]
     Active Substance: CARBIDOPA\LEVODOPA
     Indication: PARKINSON^S DISEASE
     Dosage: MD: 13.0 ML, CD: 3.7 ML/H, ED: 4.0 ML
     Route: 050
     Dates: start: 20181105

REACTIONS (3)
  - Coma [Not Recovered/Not Resolved]
  - Death [Fatal]
  - Cerebrovascular accident [Not Recovered/Not Resolved]

NARRATIVE: CASE EVENT DATE: 20210331
